FAERS Safety Report 7630560-9 (Version None)
Quarter: 2011Q3

REPORT INFORMATION
  Report Type: 
  Country: None (occurrence: None)
  Receive Date: 20110722
  Receipt Date: 20110718
  Transmission Date: 20111222
  Serious: Yes (Life-Threatening, Hospitalization, Other)
  Sender: FDA-Public Use
  Company Number: PHHY2011US50018

PATIENT
  Age: 5 Year
  Sex: Female
  Weight: 17 kg

DRUGS (2)
  1. VITAMINS NOS [Concomitant]
  2. EXJADE [Suspect]
     Dosage: 500 MG, DIALY
     Route: 048
     Dates: start: 20090701, end: 20110518

REACTIONS (33)
  - ELECTROLYTE IMBALANCE [None]
  - HYPERAMMONAEMIA [None]
  - PULMONARY OEDEMA [None]
  - ACUTE RESPIRATORY FAILURE [None]
  - URINE ABNORMALITY [None]
  - PYELONEPHRITIS [None]
  - INJECTION SITE CELLULITIS [None]
  - ABDOMINAL PAIN [None]
  - HYPOPHOSPHATAEMIA [None]
  - RENAL TUBULAR DISORDER [None]
  - PROTEINURIA [None]
  - ERYTHEMA [None]
  - HYPOKALAEMIA [None]
  - MENTAL STATUS CHANGES [None]
  - COAGULOPATHY [None]
  - LEFT VENTRICULAR HYPERTROPHY [None]
  - BRAIN NATRIURETIC PEPTIDE INCREASED [None]
  - URINARY TRACT INFECTION [None]
  - ESCHERICHIA INFECTION [None]
  - VOMITING [None]
  - HYPOPHAGIA [None]
  - TACHYPNOEA [None]
  - TACHYCARDIA [None]
  - DYSURIA [None]
  - ILEUS [None]
  - MULTI-ORGAN FAILURE [None]
  - HEPATIC FAILURE [None]
  - ELECTROLYTE DEPLETION [None]
  - OEDEMA PERIPHERAL [None]
  - RHINOVIRUS INFECTION [None]
  - METABOLIC ACIDOSIS [None]
  - HYPONATRAEMIA [None]
  - TENDERNESS [None]
